FAERS Safety Report 23376457 (Version 1)
Quarter: 2024Q1

REPORT INFORMATION
  Report Type: Spontaneous
  Country: US (occurrence: US)
  Receive Date: 20240108
  Receipt Date: 20240108
  Transmission Date: 20240410
  Serious: No
  Sender: FDA-Public Use
  Company Number: US-CHIESI-2023CHF04248

PATIENT
  Sex: Male
  Weight: 3.17 kg

DRUGS (3)
  1. CUROSURF [Suspect]
     Active Substance: PORACTANT ALFA
     Indication: Dyspnoea
     Dosage: 6 MILLILITER, (1X)
     Route: 050
     Dates: start: 20230814, end: 20230814
  2. CUROSURF [Suspect]
     Active Substance: PORACTANT ALFA
     Indication: Dyspnoea
  3. CUROSURF [Suspect]
     Active Substance: PORACTANT ALFA
     Indication: Off label use

REACTIONS (3)
  - Off label use [Recovered/Resolved]
  - Off label use [Recovered/Resolved]
  - Off label use [Recovered/Resolved]

NARRATIVE: CASE EVENT DATE: 20230814
